FAERS Safety Report 21699472 (Version 1)
Quarter: 2022Q4

REPORT INFORMATION
  Report Type: Spontaneous
  Country: FR (occurrence: FR)
  Receive Date: 20221208
  Receipt Date: 20221208
  Transmission Date: 20230113
  Serious: Yes (Life-Threatening, Other)
  Sender: FDA-Public Use
  Company Number: None

PATIENT
  Age: 82 Year
  Sex: Male
  Weight: 73 kg

DRUGS (9)
  1. LOVENOX [Interacting]
     Active Substance: ENOXAPARIN SODIUM
     Indication: Thrombosis prophylaxis
     Dosage: 1 DF, QD
     Route: 058
     Dates: start: 20221011, end: 20221019
  2. KARDEGIC [Interacting]
     Active Substance: ASPIRIN DL-LYSINE
     Indication: Cardiovascular event prophylaxis
     Dosage: 1 DF, QD
     Route: 048
     Dates: end: 20221019
  3. MOVICOLON [Concomitant]
     Active Substance: POLYETHYLENE GLYCOL 3350\POTASSIUM CHLORIDE\SODIUM BICARBONATE\SODIUM CHLORIDE
     Dosage: 4 DF, QD
     Route: 048
     Dates: start: 20221015, end: 20221021
  4. FENTANYL [Concomitant]
     Active Substance: FENTANYL
     Dosage: 2000 UG, QD
     Route: 042
     Dates: start: 20221010, end: 20221021
  5. NOREPINEPHRINE [Concomitant]
     Active Substance: NOREPINEPHRINE
     Dosage: UNK
     Route: 042
     Dates: start: 20221007
  6. DEXAMETHASONE [Concomitant]
     Active Substance: DEXAMETHASONE
     Dosage: 6 MG, QD
     Route: 042
     Dates: start: 20221012, end: 20221020
  7. PIPERACILLIN SODIUM\TAZOBACTAM SODIUM [Concomitant]
     Active Substance: PIPERACILLIN SODIUM\TAZOBACTAM SODIUM
     Dosage: 16 G, QD
     Route: 042
     Dates: start: 20221017, end: 20221020
  8. MIDAZOLAM [Concomitant]
     Active Substance: MIDAZOLAM
     Dosage: 64 MG, QD
     Route: 042
     Dates: start: 20221010, end: 20221020
  9. ACTRAPID [Concomitant]
     Active Substance: INSULIN HUMAN
     Dosage: 104 IU, QD
     Route: 042
     Dates: start: 20221010

REACTIONS (2)
  - Shock haemorrhagic [Not Recovered/Not Resolved]
  - Drug interaction [Not Recovered/Not Resolved]

NARRATIVE: CASE EVENT DATE: 20221001
